FAERS Safety Report 18659752 (Version 2)
Quarter: 2021Q1

REPORT INFORMATION
  Report Type: Spontaneous
  Country: US (occurrence: US)
  Receive Date: 20201224
  Receipt Date: 20210215
  Transmission Date: 20210419
  Serious: Yes (Other)
  Sender: FDA-Public Use
  Company Number: US-TEVA-2020-US-1862867

PATIENT
  Age: 20 Year
  Sex: Female

DRUGS (13)
  1. AUSTEDO [Concomitant]
     Active Substance: DEUTETRABENAZINE
  2. FOCALIN [Concomitant]
     Active Substance: DEXMETHYLPHENIDATE HYDROCHLORIDE
  3. GABAPENTIN. [Concomitant]
     Active Substance: GABAPENTIN
  4. SINGULAIR [Concomitant]
     Active Substance: MONTELUKAST SODIUM
  5. CLONAZEPAM. [Concomitant]
     Active Substance: CLONAZEPAM
  6. LUNESTA [Concomitant]
     Active Substance: ESZOPICLONE
  7. TOPAMAX [Concomitant]
     Active Substance: TOPIRAMATE
  8. BIOTIN [Concomitant]
     Active Substance: BIOTIN
  9. EQUETRO [Concomitant]
     Active Substance: CARBAMAZEPINE
  10. PRAZOSIN. [Concomitant]
     Active Substance: PRAZOSIN
  11. TRAZODONE [Concomitant]
     Active Substance: TRAZODONE HYDROCHLORIDE
  12. AJOVY [Suspect]
     Active Substance: FREMANEZUMAB-VFRM
     Dosage: A SINGLE INJECTION; 225 MG/ 1.5ML
     Route: 058
     Dates: start: 20201214
  13. CYMBALTA [Concomitant]
     Active Substance: DULOXETINE HYDROCHLORIDE

REACTIONS (3)
  - Dyspnoea [Recovered/Resolved]
  - Anaphylactic reaction [Recovered/Resolved]
  - Urticaria [Recovering/Resolving]

NARRATIVE: CASE EVENT DATE: 20201214
